FAERS Safety Report 9716612 (Version 1)
Quarter: 2013Q4

REPORT INFORMATION
  Report Type: Spontaneous
  Country: SE (occurrence: SE)
  Receive Date: 20131127
  Receipt Date: 20131127
  Transmission Date: 20140711
  Serious: Yes (Hospitalization, Other)
  Sender: FDA-Public Use
  Company Number: SE-PFIZER INC-2013336368

PATIENT
  Age: 16 Year
  Sex: Male
  Weight: 65.5 kg

DRUGS (6)
  1. OLANZAPINE [Suspect]
     Indication: PSYCHOTIC DISORDER
     Dosage: 10 MG, DAILY
     Route: 048
  2. HALOPERIDOL [Suspect]
     Dosage: 2.5 MG, UNK
     Route: 030
  3. LEVOMEPROMAZINE [Suspect]
     Indication: PSYCHOTIC DISORDER
     Dosage: 25 MG, DAILY
     Route: 030
  4. LEVOMEPROMAZINE [Suspect]
     Dosage: 37.5 MG, DAILY
     Route: 030
  5. LORAZEPAM [Concomitant]
     Indication: PSYCHOTIC DISORDER
     Dosage: AS REQUIRED
  6. LORAZEPAM [Concomitant]
     Indication: AGITATION
     Dosage: 1-3 MG/DAY

REACTIONS (2)
  - Neuroleptic malignant syndrome [Recovering/Resolving]
  - Toxicity to various agents [Recovering/Resolving]
